FAERS Safety Report 5304561-X (Version None)
Quarter: 2007Q2

REPORT INFORMATION
  Report Type: 
  Country: None (occurrence: None)
  Receive Date: 20070419
  Receipt Date: 20070419
  Transmission Date: 20071010
  Serious: Yes (Hospitalization)
  Sender: FDA-Public Use
  Company Number: None

PATIENT
  Sex: Male
  Weight: 88 kg

DRUGS (1)
  1. TEMOZOLOMIDE 300 MG [Suspect]
     Dosage: 300 MG

REACTIONS (8)
  - ASTHENIA [None]
  - BACK PAIN [None]
  - CELLULITIS [None]
  - CONDITION AGGRAVATED [None]
  - DEPRESSION [None]
  - FATIGUE [None]
  - MENTAL STATUS CHANGES [None]
  - PAIN [None]
